FAERS Safety Report 24295709 (Version 1)
Quarter: 2024Q3

REPORT INFORMATION
  Report Type: Spontaneous
  Country: US (occurrence: US)
  Receive Date: 20240908
  Receipt Date: 20240908
  Transmission Date: 20241017
  Serious: No
  Sender: BAUSCH AND LOMB
  Company Number: US-BAUSCHBL-2024BNL032515

PATIENT
  Age: 71 Year
  Sex: Female

DRUGS (2)
  1. ERYTHROMYCIN [Suspect]
     Active Substance: ERYTHROMYCIN
     Indication: Postoperative care
     Dosage: 5 YEARS AGO
     Route: 047
  2. ERYTHROMYCIN [Suspect]
     Active Substance: ERYTHROMYCIN
     Dosage: EVERY DAY FOR 7 DAYS, AT NIGHTTIME IN HER LEFT EYE
     Route: 047
     Dates: start: 20240821, end: 20240826

REACTIONS (7)
  - Eye swelling [Recovering/Resolving]
  - Periorbital inflammation [Recovering/Resolving]
  - Eye pruritus [Recovering/Resolving]
  - Lacrimation increased [Recovering/Resolving]
  - Irritability [Recovering/Resolving]
  - Ocular hyperaemia [Recovering/Resolving]
  - Product quality issue [Unknown]

NARRATIVE: CASE EVENT DATE: 20240801
